FAERS Safety Report 8293252-1 (Version None)
Quarter: 2012Q2

REPORT INFORMATION
  Report Type: 
  Country: None (occurrence: None)
  Receive Date: 20120417
  Receipt Date: 20111013
  Transmission Date: 20120825
  Serious: No
  Sender: FDA-Public Use
  Company Number: US-ASTRAZENECA-2011SE61769

PATIENT
  Age: 56 Year
  Sex: Male
  Weight: 117.9 kg

DRUGS (3)
  1. NEXIUM [Suspect]
     Indication: GASTROINTESTINAL ULCER
     Route: 048
     Dates: start: 20110501
  2. FLOMAX [Concomitant]
     Indication: PROSTATOMEGALY
  3. FINASTERIDE [Concomitant]
     Indication: PROSTATOMEGALY

REACTIONS (3)
  - ABDOMINAL PAIN [None]
  - DRUG THERAPY CHANGED [None]
  - OFF LABEL USE [None]
